FAERS Safety Report 6010639-8 (Version None)
Quarter: 2008Q4

REPORT INFORMATION
  Report Type: 
  Country: None (occurrence: None)
  Receive Date: 20081216
  Receipt Date: 20081203
  Transmission Date: 20090506
  Serious: Yes (Hospitalization)
  Sender: FDA-Public Use
  Company Number: 2008-04329

PATIENT
  Age: 71 Year
  Sex: Female
  Weight: 57 kg

DRUGS (15)
  1. VELCADE [Suspect]
     Indication: MULTIPLE MYELOMA
     Dosage: 2.1 MG, INTRAVENOUS
     Route: 042
     Dates: start: 20080609, end: 20081020
  2. CNT0328(CNT0328) VIAL [Suspect]
     Indication: MULTIPLE MYELOMA
     Dosage: 250 MG, INTRAVENOUS
     Route: 042
     Dates: start: 20080609, end: 20081110
  3. PLACEBO() [Suspect]
     Indication: MULTIPLE MYELOMA
     Dosage: 250 MG, INTRAVENOUS
     Route: 042
     Dates: start: 20080609, end: 20081110
  4. DEXAMETHASONE TAB [Suspect]
     Indication: MULTIPLE MYELOMA
     Dosage: ORAL
     Route: 048
  5. HYDROCORTISONE [Concomitant]
  6. ACETAMINOPHEN [Concomitant]
  7. REASEC (ATROPINE SULFATE, DIPHENOXYLATE HYDROCHLORIDE) [Concomitant]
  8. CERUCAL (METOCLOPRAMIDE HYDROCHLORIDE) [Concomitant]
  9. TRANSTEC (BUPRENORPHINE) [Concomitant]
  10. TENSIOMIN (CAPTOPRIL) [Concomitant]
  11. FELODIPINE [Concomitant]
  12. MELOXICAM [Concomitant]
  13. ACETYLCYSTEINE [Concomitant]
  14. BUPRENORPHINE HCL [Concomitant]
  15. METOPROLOL TARTRATE [Concomitant]

REACTIONS (3)
  - CONJUNCTIVITIS [None]
  - ERYSIPELAS [None]
  - HEADACHE [None]
